FAERS Safety Report 10095724 (Version 2)
Quarter: 2014Q2

REPORT INFORMATION
  Report Type: Spontaneous
  Country: US (occurrence: US)
  Receive Date: 20140422
  Receipt Date: 20140422
  Transmission Date: 20141212
  Serious: No
  Sender: FDA-Public Use
  Company Number: US-GILEAD-2013-0072419

PATIENT
  Sex: Male

DRUGS (1)
  1. LETAIRIS [Suspect]
     Indication: PULMONARY ARTERIAL HYPERTENSION
     Dosage: 10 MG, QD
     Route: 048
     Dates: start: 20120814

REACTIONS (6)
  - Pulmonary arterial pressure [Unknown]
  - Gastric infection [Unknown]
  - Eye infection [Unknown]
  - Drug ineffective [Unknown]
  - Oedema [Unknown]
  - Peripheral swelling [Unknown]
